FAERS Safety Report 4914050-X (Version None)
Quarter: 2006Q1

REPORT INFORMATION
  Report Type: 
  Country: None (occurrence: None)
  Receive Date: 20060216
  Receipt Date: 20060214
  Transmission Date: 20060701
  Serious: Yes (Death)
  Sender: FDA-Public Use
  Company Number: JP-SANOFI-SYNTHELABO-F01200600421

PATIENT
  Sex: Male

DRUGS (3)
  1. OXALIPLATIN [Suspect]
     Indication: COLON CANCER
     Dosage: DOSE UNKNOWN
     Route: 042
     Dates: start: 20060201, end: 20060201
  2. FLUOROURACIL [Suspect]
     Dosage: DOSE UNKNOWN
     Route: 042
     Dates: start: 20060201, end: 20060201
  3. CALCIUM LEVOFOLINATE [Suspect]
     Dosage: DOSE UNKNOWN
     Route: 042
     Dates: start: 20060201, end: 20060201

REACTIONS (1)
  - LEUKOPENIA [None]
